FAERS Safety Report 10297954 (Version 4)
Quarter: 2014Q3

REPORT INFORMATION
  Report Type: Spontaneous
  Country: US (occurrence: US)
  Receive Date: 20140711
  Receipt Date: 20140915
  Transmission Date: 20150326
  Serious: Yes (Life-Threatening, Hospitalization, Disabling, Other)
  Sender: FDA-Public Use
  Company Number: US-009507513-2007-163591-NL

PATIENT
  Sex: Female
  Weight: 120.2 kg

DRUGS (6)
  1. DARVOCET-N 100 [Concomitant]
     Active Substance: ACETAMINOPHEN\PROPOXYPHENE NAPSYLATE
     Indication: CARPAL TUNNEL DECOMPRESSION
     Dosage: FREQUENCY: PRN, INDICATION 2 (LLT): PAIN CONTROL (PAIN)
     Dates: start: 20031009
  2. NUVARING [Suspect]
     Active Substance: ETHINYL ESTRADIOL\ETONOGESTREL
     Indication: CONTRACEPTION
     Dosage: 1 DF, QM
     Route: 067
     Dates: start: 20040227, end: 200408
  3. NUVARING [Suspect]
     Active Substance: ETHINYL ESTRADIOL\ETONOGESTREL
     Indication: OVARIAN CYST
  4. NUVARING [Suspect]
     Active Substance: ETHINYL ESTRADIOL\ETONOGESTREL
     Indication: HORMONE THERAPY
  5. NAPROXEN. [Concomitant]
     Active Substance: NAPROXEN
     Indication: CARPAL TUNNEL DECOMPRESSION
     Dosage: UNK UNK, PRN
     Dates: start: 20030826
  6. ACETAMINOPHEN (+) TRAMADOL HYDROCHLORIDE [Concomitant]
     Active Substance: ACETAMINOPHEN\TRAMADOL HYDROCHLORIDE
     Indication: CARPAL TUNNEL DECOMPRESSION
     Dosage: UNK UNK, PRN
     Dates: start: 20030826

REACTIONS (21)
  - Pulmonary embolism [Recovering/Resolving]
  - Cholelithiasis [Unknown]
  - Vomiting [Unknown]
  - Biliary dilatation [Unknown]
  - Vaginal haemorrhage [Unknown]
  - Bacterial vaginosis [Unknown]
  - Cervical cyst [Unknown]
  - Off label use [Unknown]
  - Myolipoma [Unknown]
  - Abdominal pain [Unknown]
  - Asthma [Unknown]
  - Carpal tunnel decompression [Unknown]
  - Breast discharge [Unknown]
  - Mouth haemorrhage [Unknown]
  - Breast tenderness [Unknown]
  - Nausea [Unknown]
  - Deep vein thrombosis [Recovering/Resolving]
  - Vena cava filter insertion [Unknown]
  - Tumour excision [Unknown]
  - Thrombosis [Unknown]
  - Antiphospholipid antibodies positive [Unknown]

NARRATIVE: CASE EVENT DATE: 200404
